FAERS Safety Report 23068141 (Version 1)
Quarter: 2023Q4

REPORT INFORMATION
  Report Type: Spontaneous
  Country: US (occurrence: US)
  Receive Date: 20231016
  Receipt Date: 20231016
  Transmission Date: 20240109
  Serious: No
  Sender: FDA-Public Use
  Company Number: US-009507513-2310USA003788

PATIENT
  Age: 65 Year
  Sex: Female

DRUGS (13)
  1. INVANZ [Suspect]
     Active Substance: ERTAPENEM SODIUM
     Indication: Rhodococcus infection
     Dosage: UNK
  2. INVANZ [Suspect]
     Active Substance: ERTAPENEM SODIUM
     Indication: Pneumonia
  3. AZITHROMYCIN [Concomitant]
     Active Substance: AZITHROMYCIN
     Indication: Pneumonia
     Dosage: UNK
  4. AZITHROMYCIN [Concomitant]
     Active Substance: AZITHROMYCIN
     Indication: Rhodococcus infection
  5. MOXIFLOXACIN [Concomitant]
     Active Substance: MOXIFLOXACIN
     Indication: Pneumonia
     Dosage: UNK
  6. MOXIFLOXACIN [Concomitant]
     Active Substance: MOXIFLOXACIN
     Indication: Rhodococcus infection
  7. PREDNISONE [Concomitant]
     Active Substance: PREDNISONE
  8. MYCOPHENOLATE MOFETIL [Concomitant]
     Active Substance: MYCOPHENOLATE MOFETIL
  9. TACROLIMUS [Concomitant]
     Active Substance: TACROLIMUS
  10. RUXOLITINIB [Concomitant]
     Active Substance: RUXOLITINIB
  11. ACYCLOVIR [Concomitant]
     Active Substance: ACYCLOVIR
  12. FLUCONAZOLE [Concomitant]
     Active Substance: FLUCONAZOLE
  13. SULFAMETHOXAZOLE\TRIMETHOPRIM [Concomitant]
     Active Substance: SULFAMETHOXAZOLE\TRIMETHOPRIM

REACTIONS (1)
  - Product use in unapproved indication [Unknown]
